FAERS Safety Report 12460851 (Version 2)
Quarter: 2016Q4

REPORT INFORMATION
  Report Type: Spontaneous
  Country: FR (occurrence: FR)
  Receive Date: 20160613
  Receipt Date: 20161025
  Transmission Date: 20170207
  Serious: Yes (Other)
  Sender: FDA-Public Use
  Company Number: FR-PFIZER INC-2016290248

PATIENT
  Age: 55 Year
  Sex: Male

DRUGS (8)
  1. SPECIAFOLDINE [Concomitant]
     Active Substance: FOLIC ACID
     Indication: SPONDYLITIS
     Dosage: 15 MG, WEEKLY
     Dates: start: 201206
  2. NOVATREX NOS [Suspect]
     Active Substance: AZITHROMYCIN OR METHOTREXATE SODIUM
     Dosage: 15 MG, WEEKLY
     Route: 048
     Dates: start: 201603, end: 20160530
  3. ZOLPIDEM [Concomitant]
     Active Substance: ZOLPIDEM\ZOLPIDEM TARTRATE
     Dosage: 10 MG, DAILY
     Route: 048
  4. HUMIRA [Suspect]
     Active Substance: ADALIMUMAB
     Indication: SPONDYLITIS
     Dosage: 40 MG EVERY 2 WEEKS
     Route: 058
     Dates: start: 20131120, end: 20160530
  5. NOVATREX NOS [Suspect]
     Active Substance: AZITHROMYCIN OR METHOTREXATE SODIUM
     Indication: SPONDYLITIS
     Dosage: 20 MG, WEEKLY
     Route: 048
     Dates: start: 201206
  6. MOPRAL /00661201/ [Concomitant]
     Active Substance: OMEPRAZOLE SODIUM
     Dosage: 20 MG, DAILY
     Route: 048
  7. IXPRIM [Concomitant]
     Active Substance: ACETAMINOPHEN\TRAMADOL HYDROCHLORIDE
     Indication: PAIN
     Dosage: UNK, AS NEEDED
  8. DAFALGAN [Concomitant]
     Active Substance: ACETAMINOPHEN
     Indication: PAIN
     Dosage: UNK, AS NEEDED

REACTIONS (2)
  - Visual acuity reduced [Not Recovered/Not Resolved]
  - Product use issue [Unknown]

NARRATIVE: CASE EVENT DATE: 201605
